FAERS Safety Report 9369683 (Version 1)
Quarter: 2013Q2

REPORT INFORMATION
  Report Type: Spontaneous
  Country: US (occurrence: None)
  Receive Date: 20130625
  Receipt Date: 20130625
  Transmission Date: 20140414
  Serious: Yes (Other)
  Sender: FDA-Public Use
  Company Number: None

PATIENT
  Age: 45 Year
  Sex: Female
  Weight: 61.4 kg

DRUGS (1)
  1. PYRIDOSTIGMINE [Suspect]
     Indication: MYASTHENIA GRAVIS
     Dosage: 60MG, TWO TABS QID, ORAL
     Route: 048

REACTIONS (3)
  - Diarrhoea [None]
  - Fatigue [None]
  - Malaise [None]
